FAERS Safety Report 24910383 (Version 1)
Quarter: 2025Q1

REPORT INFORMATION
  Report Type: Spontaneous
  Country: US (occurrence: None)
  Receive Date: 20250131
  Receipt Date: 20250131
  Transmission Date: 20250409
  Serious: Yes (Hospitalization)
  Sender: FDA-CTU
  Company Number: None

PATIENT
  Sex: Female

DRUGS (2)
  1. EPOPROSTENOL [Suspect]
     Active Substance: EPOPROSTENOL
     Indication: Pulmonary arterial hypertension
     Dates: start: 202409
  2. SOD CHLORSDV(SOMVFTY) [Concomitant]

REACTIONS (3)
  - Endarterectomy [None]
  - Pulmonary thrombosis [None]
  - Therapy cessation [None]
